FAERS Safety Report 6960205-2 (Version None)
Quarter: 2010Q3

REPORT INFORMATION
  Report Type: 
  Country: None (occurrence: None)
  Receive Date: 20100901
  Receipt Date: 20100824
  Transmission Date: 20110219
  Serious: Yes (Other)
  Sender: FDA-Public Use
  Company Number: SE-BRISTOL-MYERS SQUIBB COMPANY-15258825

PATIENT
  Age: 62 Year
  Sex: Female

DRUGS (2)
  1. TAXOL [Suspect]
     Dosage: LAST DOSE IN JUN10
     Dates: start: 20100324
  2. PARAPLATIN [Suspect]
     Dosage: LAST DOSE IN JUN10
     Dates: start: 20100324

REACTIONS (4)
  - ARTHRALGIA [None]
  - GAIT DISTURBANCE [None]
  - HAEMORRHAGE [None]
  - HYPOAESTHESIA [None]
